FAERS Safety Report 5650118-0 (Version None)
Quarter: 2008Q1

REPORT INFORMATION
  Report Type: 
  Country: None (occurrence: None)
  Receive Date: 20080304
  Receipt Date: 20080226
  Transmission Date: 20080703
  Serious: Yes (Other)
  Sender: FDA-Public Use
  Company Number: US-ALLERGAN-0802332US

PATIENT
  Sex: Male

DRUGS (2)
  1. ACULAR [Suspect]
     Indication: PREOPERATIVE CARE
     Dosage: 1 GTT, SINGLE
     Route: 047
     Dates: start: 20080225, end: 20080225
  2. GLUCOPHAGE [Concomitant]
     Indication: DIABETES MELLITUS

REACTIONS (5)
  - BLOOD GLUCOSE INCREASED [None]
  - BLOOD PRESSURE INCREASED [None]
  - DIZZINESS [None]
  - FEELING HOT [None]
  - HYPERHIDROSIS [None]
